FAERS Safety Report 23032429 (Version 2)
Quarter: 2023Q4

REPORT INFORMATION
  Report Type: Spontaneous
  Country: US (occurrence: US)
  Receive Date: 20231005
  Receipt Date: 20231102
  Transmission Date: 20240110
  Serious: No
  Sender: FDA-Public Use
  Company Number: US-MSNLABS-2023MSNSPO01602

PATIENT

DRUGS (3)
  1. PREGABALIN [Suspect]
     Active Substance: PREGABALIN
     Indication: Neuropathy peripheral
     Route: 048
     Dates: start: 20230922, end: 20230924
  2. PREGABALIN [Suspect]
     Active Substance: PREGABALIN
     Indication: Radiculopathy
  3. PREGABALIN [Suspect]
     Active Substance: PREGABALIN
     Indication: Back pain

REACTIONS (3)
  - Migraine [Recovered/Resolved]
  - Anger [Recovered/Resolved]
  - Aggression [Recovered/Resolved]

NARRATIVE: CASE EVENT DATE: 20230923
